FAERS Safety Report 14771436 (Version 1)
Quarter: 2018Q2

REPORT INFORMATION
  Report Type: Spontaneous
  Country: US (occurrence: US)
  Receive Date: 20180417
  Receipt Date: 20180417
  Transmission Date: 20180711
  Serious: Yes (Hospitalization, Other)
  Sender: FDA-Public Use
  Company Number: US-SHIRE-US201813764

PATIENT
  Sex: Female

DRUGS (2)
  1. GAMMAGARD LIQUID [Suspect]
     Active Substance: HUMAN IMMUNOGLOBULIN G
     Indication: PRODUCT USED FOR UNKNOWN INDICATION
     Dosage: 10 G, 1X/WEEK
     Route: 058
  2. HEPARIN [Concomitant]
     Active Substance: HEPARIN SODIUM
     Indication: PRODUCT USED FOR UNKNOWN INDICATION

REACTIONS (5)
  - Hospitalisation [Unknown]
  - Product storage error [Unknown]
  - Inappropriate schedule of drug administration [Not Recovered/Not Resolved]
  - Injection site haemorrhage [Recovered/Resolved]
  - Malaise [Unknown]

NARRATIVE: CASE EVENT DATE: 20180409
